FAERS Safety Report 14695247 (Version 2)
Quarter: 2018Q2

REPORT INFORMATION
  Report Type: Spontaneous
  Country: CA (occurrence: CA)
  Receive Date: 20180329
  Receipt Date: 20180621
  Transmission Date: 20180711
  Serious: Yes (Hospitalization)
  Sender: FDA-Public Use
  Company Number: CA-ACTELION-A-NJ2018-167817

PATIENT
  Age: 54 Year
  Sex: Male
  Weight: 111.11 kg

DRUGS (4)
  1. TADALAFIL [Concomitant]
     Active Substance: TADALAFIL
  2. OPSUMIT [Suspect]
     Active Substance: MACITENTAN
     Indication: PULMONARY HYPERTENSION
     Dosage: 10 MG, UNK
     Route: 048
     Dates: start: 20150525
  3. CARIPUL [Suspect]
     Active Substance: EPOPROSTENOL
     Indication: PULMONARY HYPERTENSION
     Dosage: UNK
     Route: 042
     Dates: start: 20171021, end: 20180615
  4. CARIPUL [Suspect]
     Active Substance: EPOPROSTENOL
     Dosage: UNK
     Route: 042

REACTIONS (5)
  - Catheter site pruritus [Recovering/Resolving]
  - Catheter site inflammation [Recovering/Resolving]
  - Hospitalisation [Unknown]
  - Catheter site erythema [Recovering/Resolving]
  - Unevaluable event [Recovering/Resolving]
